FAERS Safety Report 8819771 (Version 2)
Quarter: 2012Q4

REPORT INFORMATION
  Report Type: 
  Country: US (occurrence: US)
  Receive Date: 20121001
  Receipt Date: 20121012
  Transmission Date: 20130627
  Serious: Yes (Death)
  Sender: FDA-Public Use
  Company Number: US-ROCHE-1136788

PATIENT
  Sex: Female
  Weight: 58 kg

DRUGS (7)
  1. HERCEPTIN [Suspect]
     Indication: BREAST CANCER FEMALE
     Dosage: in 250 cc NS over 90 min
     Route: 065
     Dates: start: 19990209, end: 19990415
  2. GENTAMICIN [Concomitant]
     Route: 042
     Dates: start: 19990207
  3. FLURACIL [Concomitant]
  4. CYTOXAN [Concomitant]
  5. METHOTREXATE [Concomitant]
  6. AREDIA [Concomitant]
     Dosage: 4 WEEKS
     Route: 065
  7. PROCRIT [Concomitant]
     Dosage: sq of week
     Route: 065

REACTIONS (2)
  - Death [Fatal]
  - Breast cancer [Unknown]
